FAERS Safety Report 21554421 (Version 1)
Quarter: 2022Q4

REPORT INFORMATION
  Report Type: Spontaneous
  Country: US (occurrence: US)
  Receive Date: 20221104
  Receipt Date: 20221104
  Transmission Date: 20230113
  Serious: Yes (Life-Threatening, Hospitalization, Other)
  Sender: FDA-Public Use
  Company Number: US-MLMSERVICE-20221018-3866781-1

PATIENT
  Age: 54 Year
  Sex: Female

DRUGS (2)
  1. AMITRIPTYLINE [Suspect]
     Active Substance: AMITRIPTYLINE
     Dosage: STRENGTH: 100 MG
     Route: 048
  2. LEVETIRACETAM [Suspect]
     Active Substance: LEVETIRACETAM
     Dosage: STRENGTH: 750 MG
     Route: 048

REACTIONS (3)
  - Unresponsive to stimuli [Unknown]
  - Depressed level of consciousness [Unknown]
  - Intentional overdose [Unknown]
